FAERS Safety Report 9551974 (Version 1)
Quarter: 2013Q3

REPORT INFORMATION
  Report Type: Spontaneous
  Country: US (occurrence: None)
  Receive Date: 20130725
  Receipt Date: 20130725
  Transmission Date: 20140515
  Serious: Yes (Hospitalization)
  Sender: FDA-Public Use
  Company Number: 1594214

PATIENT
  Age: 59 Year
  Sex: Female

DRUGS (2)
  1. CYTARABINE [Suspect]
     Indication: ACUTE MYELOID LEUKAEMIA
     Dosage: 35460 MILLIGRAM TOTAL INTRAVENOUS
     Route: 042
     Dates: start: 20120412, end: 20120610
  2. DASATINIB [Suspect]
     Indication: ACUTE MYELOID LEUKAEMIA
     Dosage: 1900 MILLIGRAMS TOTAL PO
     Route: 048
     Dates: start: 20120412, end: 20120628

REACTIONS (1)
  - Vaginal haemorrhage [None]
